FAERS Safety Report 17698529 (Version 2)
Quarter: 2022Q2

REPORT INFORMATION
  Report Type: Spontaneous
  Country: CH (occurrence: CH)
  Receive Date: 20200423
  Receipt Date: 20220413
  Transmission Date: 20220721
  Serious: Yes (Death)
  Sender: FDA-Public Use
  Company Number: CH-SM-2020-12095

PATIENT
  Sex: Female

DRUGS (15)
  1. PANTOPRAZOLE SODIUM [Suspect]
     Active Substance: PANTOPRAZOLE SODIUM
     Dosage: 40 MILLIGRAM DAILY; 1-0-0-0
     Route: 065
  2. DULOXETINE HYDROCHLORIDE [Suspect]
     Active Substance: DULOXETINE HYDROCHLORIDE
     Dosage: 120 MILLIGRAM DAILY; 1-0-1-0
     Route: 065
  3. POLYETHYLENE GLYCOL 3350\POTASSIUM CHLORIDE\SODIUM BICARBONATE\SODIUM [Suspect]
     Active Substance: POLYETHYLENE GLYCOL 3350\POTASSIUM CHLORIDE\SODIUM BICARBONATE\SODIUM CHLORIDE
     Dosage: 1 DOSAGE FORMS DAILY; MACROGOL MEPHA
     Route: 065
  4. ERENUMAB [Suspect]
     Active Substance: ERENUMAB
     Indication: Off label use
     Route: 030
     Dates: start: 2019, end: 20191121
  5. TOPAMAX [Suspect]
     Active Substance: TOPIRAMATE
     Dosage: 600 MILLIGRAM DAILY; 3-0-3-0
     Route: 065
  6. NALOXONE HYDROCHLORIDE\OXYCODONE HYDROCHLORIDE [Suspect]
     Active Substance: NALOXONE HYDROCHLORIDE\OXYCODONE HYDROCHLORIDE
     Dosage: 10 MG/5 MG: 1-0-1-0
     Route: 065
  7. RIVOTRIL [Suspect]
     Active Substance: CLONAZEPAM
     Dosage: 1-0-1-0
     Route: 048
  8. RIVOTRIL [Suspect]
     Active Substance: CLONAZEPAM
     Dosage: AS NECESSARY
     Route: 045
  9. RIVOTRIL [Suspect]
     Active Substance: CLONAZEPAM
     Dosage: 3 MILLIGRAM DAILY;
     Route: 065
  10. MAGNESIUM ASPARTATE [Suspect]
     Active Substance: MAGNESIUM ASPARTATE
     Dosage: 7.5 MILLIMOL DAILY; 0-0-0-1
     Route: 065
  11. VALPROATE SODIUM [Suspect]
     Active Substance: VALPROATE SODIUM
     Dosage: 1000 MILLIGRAM DAILY; 1-0-1-0
     Route: 065
  12. SODIUM CHONDROITIN SULFATE [Suspect]
     Active Substance: SODIUM CHONDROITIN SULFATE
     Dosage: 1600 MILLIGRAM DAILY; 1-0-1-0
     Route: 065
  13. ASPIRIN [Suspect]
     Active Substance: ASPIRIN
     Dosage: 100 MILLIGRAM DAILY; 1-0-0-0
     Route: 065
  14. DEXPANTHENOL [Suspect]
     Active Substance: DEXPANTHENOL
     Dosage: 1-1-0-1
     Route: 065
  15. SUMATRIPTAN SUCCINATE [Concomitant]
     Active Substance: SUMATRIPTAN SUCCINATE
     Dosage: INJECTION 6 MG/0.5 ML 2X PER DAY PRN; AS NECESSARY
     Dates: end: 20191203

REACTIONS (1)
  - Sudden death [Fatal]
